FAERS Safety Report 5093334-1 (Version None)
Quarter: 2006Q3

REPORT INFORMATION
  Report Type: 
  Country: None (occurrence: None)
  Receive Date: 20060830
  Receipt Date: 20060504
  Transmission Date: 20061208
  Serious: Yes (Other)
  Sender: FDA-Public Use
  Company Number: CA-MERCK-0605CAN00046

PATIENT
  Age: 77 Year
  Sex: Male

DRUGS (6)
  1. COZAAR [Suspect]
     Indication: HYPERTENSION
     Route: 048
     Dates: start: 20060209, end: 20060308
  2. COZAAR [Suspect]
     Route: 048
     Dates: start: 20060309, end: 20060406
  3. COZAAR [Suspect]
     Route: 048
     Dates: start: 20060406, end: 20060503
  4. ATORVASTATIN CALCIUM [Concomitant]
     Indication: HYPERLIPIDAEMIA
     Route: 065
     Dates: start: 20051109
  5. ASPIRIN [Concomitant]
     Indication: ANTIPLATELET THERAPY
     Route: 065
     Dates: start: 20051109
  6. CALCIUM (UNSPECIFIED) [Concomitant]
     Route: 065
     Dates: start: 20051109

REACTIONS (1)
  - PNEUMONIA [None]
